FAERS Safety Report 8073364-8 (Version None)
Quarter: 2012Q1

REPORT INFORMATION
  Report Type: 
  Country: None (occurrence: None)
  Receive Date: 20120126
  Receipt Date: 20120116
  Transmission Date: 20120608
  Serious: Yes (Hospitalization)
  Sender: FDA-Public Use
  Company Number: US-ACTELION-A-NJ2012-59841

PATIENT

DRUGS (2)
  1. EPOPROSTENOL SODIUM [Suspect]
     Indication: PULMONARY ARTERIAL HYPERTENSION
     Dosage: 27.5 NG/KG, PER MIN
     Route: 041
     Dates: start: 20100426
  2. SILDENAFIL [Concomitant]

REACTIONS (1)
  - LIVER TRANSPLANT [None]
